FAERS Safety Report 19622341 (Version 1)
Quarter: 2021Q3

REPORT INFORMATION
  Report Type: Report from Study
  Country: AR (occurrence: AR)
  Receive Date: 20210728
  Receipt Date: 20210728
  Transmission Date: 20211014
  Serious: Yes (Death, Other)
  Sender: FDA-Public Use
  Company Number: NVSC2021AR169055

PATIENT
  Sex: Male

DRUGS (1)
  1. DIOVAN [Suspect]
     Active Substance: VALSARTAN
     Indication: PRODUCT USED FOR UNKNOWN INDICATION
     Route: 065

REACTIONS (7)
  - Bowel movement irregularity [Fatal]
  - Weight decreased [Unknown]
  - Decreased appetite [Unknown]
  - Dysphagia [Fatal]
  - Movement disorder [Fatal]
  - Multiple sclerosis [Fatal]
  - Muscle atrophy [Fatal]
